FAERS Safety Report 7590135-7 (Version None)
Quarter: 2011Q3

REPORT INFORMATION
  Report Type: 
  Country: None (occurrence: None)
  Receive Date: 20110705
  Receipt Date: 20110624
  Transmission Date: 20111222
  Serious: Yes (Other)
  Sender: FDA-Public Use
  Company Number: B0730577A

PATIENT
  Sex: Male

DRUGS (1)
  1. MALARONE [Suspect]
     Indication: PROPHYLAXIS
     Route: 048

REACTIONS (1)
  - PANCREATITIS ACUTE [None]
